FAERS Safety Report 11936580 (Version 5)
Quarter: 2016Q4

REPORT INFORMATION
  Report Type: Spontaneous
  Country: US (occurrence: US)
  Receive Date: 20160121
  Receipt Date: 20161220
  Transmission Date: 20170206
  Serious: Yes (Hospitalization)
  Sender: FDA-Public Use
  Company Number: US-PFIZER INC-2016025045

PATIENT
  Age: 73 Year
  Sex: Male
  Weight: 112 kg

DRUGS (36)
  1. LYRICA [Suspect]
     Active Substance: PREGABALIN
     Dosage: 200 MG, 2X/DAY
     Route: 048
     Dates: start: 20161130
  2. NOVOLOG [Concomitant]
     Active Substance: INSULIN ASPART
     Dosage: 5 IU, BEFORE EACH MEAL
     Route: 058
  3. LYRICA [Suspect]
     Active Substance: PREGABALIN
     Dosage: 100 MG, 2X/DAY
     Route: 048
     Dates: start: 20151211
  4. ACETAZOLAMIDE. [Concomitant]
     Active Substance: ACETAZOLAMIDE
     Dosage: 250 MG, DAILY
     Route: 048
     Dates: start: 20151215
  5. ALLOPURINOL. [Concomitant]
     Active Substance: ALLOPURINOL
     Dosage: 150 MG, DAILY
     Route: 048
     Dates: start: 20161127
  6. ATORVASTATIN [Concomitant]
     Active Substance: ATORVASTATIN
     Dosage: 10 MG, DAILY
     Route: 048
     Dates: start: 20161028
  7. NOVOLIN [Concomitant]
     Active Substance: INSULIN HUMAN
     Dosage: 55 IU, DAILY (INJECT 30 UNITS BY SUBCUTANEOUS ROUTE IN THE AM AND 25 UNITS AT BEDTIME DAILY)
     Route: 058
     Dates: start: 20161027
  8. FISH OIL [Concomitant]
     Active Substance: FISH OIL
     Dosage: 200 MG, DAILY
     Route: 048
  9. BENADRYL [Concomitant]
     Active Substance: DIPHENHYDRAMINE HYDROCHLORIDE
     Indication: PRURITUS
     Dosage: 25 MG, AS NEEDED
     Route: 048
  10. LYRICA [Suspect]
     Active Substance: PREGABALIN
     Indication: DIABETIC NEUROPATHY
     Dosage: 200 MG, 2X/DAY
     Route: 048
  11. BUMETANIDE. [Concomitant]
     Active Substance: BUMETANIDE
     Dosage: 2 MG, 2X/DAY
     Route: 048
     Dates: start: 20161128
  12. KLOR-CON M10 [Concomitant]
     Active Substance: POTASSIUM CHLORIDE
     Dosage: 10 MEQ, DAILY
     Route: 048
     Dates: start: 20161025
  13. POTASSIUM CHLORIDE. [Concomitant]
     Active Substance: POTASSIUM CHLORIDE
     Dosage: 10 MEQ, DAILY
     Route: 048
  14. CITRUCEL [Concomitant]
     Active Substance: METHYLCELLULOSE (4000 MPA.S)
     Dosage: 1000 MG, 2X/DAY
     Route: 048
  15. NOVOLOG [Concomitant]
     Active Substance: INSULIN ASPART
     Dosage: UNK, 3X/DAY (TID PER SS)
     Route: 058
     Dates: start: 20161027
  16. FLOMAX [Concomitant]
     Active Substance: TAMSULOSIN HYDROCHLORIDE
     Dosage: 0.4 MG, 1X/DAY 1/2 HOUR FOLLOWING THE SAME MEAL EACH DAY
     Route: 048
  17. PSYLLIUM HUSK [Concomitant]
     Active Substance: PSYLLIUM HUSK
     Dosage: 1.04 G, DAILY
     Route: 048
  18. BUMETANIDE. [Concomitant]
     Active Substance: BUMETANIDE
     Dosage: 2 MG, 1X/DAY
     Route: 048
  19. SPIRONOLACTONE. [Concomitant]
     Active Substance: SPIRONOLACTONE
     Dosage: 25 MG, 1X/DAY ((6/20/16 HAS BEEN TAKING 1/2 DOSE DUE TO LOW BP))
     Route: 048
     Dates: start: 20160620
  20. METHOCARBAMOL. [Concomitant]
     Active Substance: METHOCARBAMOL
     Dosage: 500 MG (1-2 TABLETS BY 3 TIMES A DAY AS NEEDED )
     Route: 048
  21. ALLOPURINOL. [Concomitant]
     Active Substance: ALLOPURINOL
     Dosage: 150 MG, DAILY (300MG,1/2 TAB DAILY)
     Route: 048
     Dates: start: 20151223
  22. LACTULOSE. [Concomitant]
     Active Substance: LACTULOSE
     Dosage: 30 ML, UNK (2- 3 TIMES PER DAY )
     Route: 048
     Dates: start: 20151228
  23. TRAMADOL. [Concomitant]
     Active Substance: TRAMADOL
     Indication: PAIN
     Dosage: 50 MG EVERY 8 HOURS AS NEEDED
     Route: 048
     Dates: start: 20151223
  24. TAMSULOSIN [Concomitant]
     Active Substance: TAMSULOSIN
     Dosage: 0.4 MG, DAILY (0.4 MG ONCE DAILY 1/2 HOUR FOLLOWING THE SAME MEAL EACH DAY)
     Route: 048
  25. METODINE [Concomitant]
  26. CLOPIDOGREL [Concomitant]
     Active Substance: CLOPIDOGREL BISULFATE
     Dosage: 75 MG, 1X/DAY
     Route: 048
     Dates: start: 20161125
  27. OMEGA 3 [Concomitant]
     Active Substance: OMEGA-3 FATTY ACIDS
     Dosage: 200 MG, DAILY
     Route: 048
  28. ATORVASTATIN [Concomitant]
     Active Substance: ATORVASTATIN
     Dosage: 10 MG, DAILY
     Route: 048
     Dates: start: 20151216
  29. LACTULOSE. [Concomitant]
     Active Substance: LACTULOSE
     Dosage: 30 ML, UNK (1-2 TIMES PER DAY AS DIRECTED)
     Route: 048
     Dates: start: 20161027
  30. OMEPRAZOL [Concomitant]
     Active Substance: OMEPRAZOLE
     Dosage: 20 MG, 1X/DAY
     Route: 048
     Dates: start: 20151211
  31. DIAZEPAM. [Concomitant]
     Active Substance: DIAZEPAM
     Dosage: 5 MG 3 TIMES PER DAY AS NEEDED
     Route: 048
     Dates: start: 20160601
  32. NOVOLIN [Concomitant]
     Active Substance: INSULIN HUMAN
     Dosage: 55 IU, DAILY (INJECT 40 UNITS BY SUBCUTANEOUS ROUTE IN THE AM AND 15 UNITS AT BEDTIME DAILY)
     Route: 058
  33. FERROUS SULFATE. [Concomitant]
     Active Substance: FERROUS SULFATE
     Dosage: 325 MG (65 IRON), DAILY
     Route: 048
  34. TRAZODONE [Concomitant]
     Active Substance: TRAZODONE HYDROCHLORIDE
     Dosage: 50 MG (1 TABLET QD AT BEDTIME AS NEEDED)
     Route: 048
  35. NICODERM CQ [Concomitant]
     Active Substance: NICOTINE
     Dosage: 21 MG, 1X/DAY
     Route: 062
  36. CIPRO [Concomitant]
     Active Substance: CIPROFLOXACIN HYDROCHLORIDE
     Dosage: 250 MG, 2X/DAY
     Route: 048

REACTIONS (2)
  - Overdose [Unknown]
  - Urinary tract infection [Recovered/Resolved]

NARRATIVE: CASE EVENT DATE: 20160114
